FAERS Safety Report 18281164 (Version 1)
Quarter: 2020Q3

REPORT INFORMATION
  Report Type: Spontaneous
  Country: US (occurrence: US)
  Receive Date: 20200918
  Receipt Date: 20200918
  Transmission Date: 20201103
  Serious: Yes (Other)
  Sender: FDA-Public Use
  Company Number: US-SA-2020SA248940

PATIENT

DRUGS (1)
  1. ACT ANTICAVITY FLUORIDE MINT [Suspect]
     Active Substance: SODIUM FLUORIDE
     Indication: HYPERAESTHESIA TEETH
     Dosage: UNK
     Dates: start: 20200810

REACTIONS (2)
  - Cough [Unknown]
  - Choking [Unknown]

NARRATIVE: CASE EVENT DATE: 20200810
